FAERS Safety Report 19190265 (Version 2)
Quarter: 2021Q2

REPORT INFORMATION
  Report Type: Spontaneous
  Country: DE (occurrence: DE)
  Receive Date: 20210428
  Receipt Date: 20210507
  Transmission Date: 20210717
  Serious: Yes (Hospitalization, Other)
  Sender: FDA-Public Use
  Company Number: DE-AMGEN-DEUSP2021061325

PATIENT
  Age: 51 Year
  Sex: Female
  Weight: 45 kg

DRUGS (1)
  1. PROLIA [Suspect]
     Active Substance: DENOSUMAB
     Indication: METASTASES TO BONE
     Dosage: 60 MILLIGRAM, Q6MO
     Route: 058
     Dates: start: 2014

REACTIONS (4)
  - Osteomyelitis [Unknown]
  - Osteonecrosis of jaw [Unknown]
  - Off label use [Unknown]
  - Oral infection [Unknown]

NARRATIVE: CASE EVENT DATE: 2014
